FAERS Safety Report 6366728-1 (Version None)
Quarter: 2009Q3

REPORT INFORMATION
  Report Type: 
  Country: None (occurrence: None)
  Receive Date: 20090921
  Receipt Date: 20090819
  Transmission Date: 20100115
  Serious: No
  Sender: FDA-Public Use
  Company Number: US-BAYER-200930759NA

PATIENT
  Age: 48 Year
  Sex: Male
  Weight: 79 kg

DRUGS (2)
  1. ULTRAVIST 300 [Suspect]
     Indication: COMPUTERISED TOMOGRAM ABDOMEN
     Dosage: TOTAL DAILY DOSE: 180 ML  UNIT DOSE: 200 ML
     Route: 042
     Dates: start: 20090819, end: 20090819
  2. VOLUMEN [Concomitant]
     Dosage: X2
     Route: 048
     Dates: start: 20090819, end: 20090819

REACTIONS (2)
  - NAUSEA [None]
  - VOMITING [None]
